FAERS Safety Report 6939340-0 (Version None)
Quarter: 2010Q3

REPORT INFORMATION
  Report Type: 
  Country: None (occurrence: None)
  Receive Date: 20100824
  Receipt Date: 20080212
  Transmission Date: 20110219
  Serious: Yes (Life-Threatening)
  Sender: FDA-Public Use
  Company Number: CD-ABBOTT-10P-188-0664939-01

PATIENT
  Age: 3 Year
  Sex: Female

DRUGS (4)
  1. RITONAVIR ORAL SOLUTION [Suspect]
     Indication: HIV INFECTION
     Route: 048
     Dates: start: 20050615
  2. ATAZANAVIR [Concomitant]
     Indication: HIV INFECTION
     Route: 048
     Dates: start: 20050615
  3. LAMIVUDINE [Concomitant]
     Indication: HIV INFECTION
     Route: 048
     Dates: start: 20050615
  4. ZIDOVUDINE [Concomitant]
     Indication: HIV INFECTION
     Route: 048
     Dates: start: 20050615

REACTIONS (1)
  - LIPASE INCREASED [None]
